FAERS Safety Report 5144449-0 (Version None)
Quarter: 2006Q4

REPORT INFORMATION
  Report Type: 
  Country: None (occurrence: None)
  Receive Date: 20061031
  Receipt Date: 20060403
  Transmission Date: 20070319
  Serious: Yes (Death, Other)
  Sender: FDA-Public Use
  Company Number: 2006BH007326

PATIENT
  Age: 91 Year
  Sex: Female
  Weight: 39 kg

DRUGS (13)
  1. EXTRANEAL [Suspect]
     Indication: RENAL FAILURE CHRONIC
     Dosage: 1500 ML; EVERY DAY; IP
     Route: 033
     Dates: start: 20040708, end: 20060123
  2. DIANEAL PD2 UNKNOWN BAG [Concomitant]
  3. CALCITRIOL [Concomitant]
  4. LAFUTIDINE [Concomitant]
  5. DIGITOXIN TAB [Concomitant]
  6. WARFARIN SODIUM [Concomitant]
  7. CILOSTAZOL [Concomitant]
  8. SPIRONOLACTONE [Concomitant]
  9. ISOSORBIDE MONONITRATE [Concomitant]
  10. ESSENTIAL AMINO ACIDS FOR RENAL INSUFFICIENCY [Concomitant]
  11. ISOSORBIDE DINITRATE [Concomitant]
  12. SENNOSIDE [Concomitant]
  13. ISOSORBIDE DINITRATE [Concomitant]

REACTIONS (5)
  - BLOOD ALBUMIN DECREASED [None]
  - BLOOD POTASSIUM DECREASED [None]
  - C-REACTIVE PROTEIN INCREASED [None]
  - PNEUMONIA [None]
  - WHITE BLOOD CELL COUNT INCREASED [None]
